FAERS Safety Report 14307916 (Version 1)
Quarter: 2017Q4

REPORT INFORMATION
  Report Type: Spontaneous
  Country: US (occurrence: US)
  Receive Date: 20171220
  Receipt Date: 20171220
  Transmission Date: 20180321
  Serious: No
  Sender: FDA-Public Use
  Company Number: US-BAYER-2017-244736

PATIENT
  Age: 29 Year
  Sex: Female
  Weight: 49.89 kg

DRUGS (1)
  1. MIRALAX [Suspect]
     Active Substance: POLYETHYLENE GLYCOL 3350
     Indication: GASTROINTESTINAL DISORDER
     Dosage: 1 DF, (CAPFUL)QOD
     Route: 048
     Dates: start: 2017

REACTIONS (5)
  - Poor quality drug administered [None]
  - Product taste abnormal [None]
  - Underdose [None]
  - Product odour abnormal [None]
  - Product quality issue [None]
